FAERS Safety Report 17761447 (Version 4)
Quarter: 2021Q4

REPORT INFORMATION
  Report Type: Spontaneous
  Country: US (occurrence: US)
  Receive Date: 20200508
  Receipt Date: 20211206
  Transmission Date: 20220303
  Serious: No
  Sender: FDA-Public Use
  Company Number: US-VERTEX PHARMACEUTICALS-2020-009721

PATIENT
  Sex: Female
  Weight: 54 kg

DRUGS (19)
  1. TRIKAFTA [Interacting]
     Active Substance: ELEXACAFTOR\IVACAFTOR\TEZACAFTOR
     Indication: Cystic fibrosis
     Dosage: 100 MG ELEXACAFTOR/ 50 MG TEZACAFTOR/ 75 MG IVACAFTOR; 150MG IVACAFTOR, TRADITIONAL DOSING
     Route: 048
     Dates: start: 20191121
  2. TRIKAFTA [Interacting]
     Active Substance: ELEXACAFTOR\IVACAFTOR\TEZACAFTOR
     Dosage: REDUCED DOSE TO 2  ORANGE TABS TWICE A WEEK
     Route: 048
  3. TRIKAFTA [Interacting]
     Active Substance: ELEXACAFTOR\IVACAFTOR\TEZACAFTOR
     Dosage: RECOMMENDED DOSE
     Route: 048
  4. VORICONAZOLE [Interacting]
     Active Substance: VORICONAZOLE
     Indication: Aspergillus infection
     Route: 065
  5. ARIKAYCE [Concomitant]
     Active Substance: AMIKACIN
     Dosage: 500 MG, MON, WED, FRI
  6. CREON [Concomitant]
     Active Substance: PANCRELIPASE AMYLASE\PANCRELIPASE LIPASE\PANCRELIPASE PROTEASE
     Dosage: 6 CAP WITH MEALS,TID, 5 CAP WITH SNACKS TID
  7. MEPHYTON [Concomitant]
     Active Substance: PHYTONADIONE
     Dosage: 1 TAB FOR 30 DAYS
  8. PULMOZYME [Concomitant]
     Active Substance: DORNASE ALFA
     Dosage: 2.5 MILLILITER
     Route: 055
  9. TYLENOL [Concomitant]
     Active Substance: ACETAMINOPHEN
     Indication: Pain
     Dosage: 2 TAB EVERY 4 HRS PRN
     Route: 048
  10. TYLENOL [Concomitant]
     Active Substance: ACETAMINOPHEN
     Indication: Body temperature increased
  11. VITAMIN D3 [Concomitant]
     Active Substance: CHOLECALCIFEROL
     Dosage: 1 CAP, BID
     Route: 048
  12. ALBUTEROL [Concomitant]
     Active Substance: ALBUTEROL
     Dosage: 4 PUFF BID, EVERY 4 HRS PRN
  13. CHOLECALCIFEROL [Concomitant]
     Active Substance: CHOLECALCIFEROL
     Dosage: 2 TAB ONCE A DAY
     Route: 048
  14. FERROUS SULFATE [Concomitant]
     Active Substance: FERROUS SULFATE
     Dosage: 1 TAB, BID
     Route: 048
  15. OMADACYCLINE [Concomitant]
     Active Substance: OMADACYCLINE
     Dosage: 2 TAB, QD
     Route: 048
  16. OMEPRAZOLE [Concomitant]
     Active Substance: OMEPRAZOLE
     Dosage: 1 CAP, QD
  17. SENNOSIDES A AND B [Concomitant]
     Active Substance: SENNOSIDES A AND B
     Dosage: 2 TAB, QD AT BEDTIME
     Route: 048
  18. TEDIZOLID [Concomitant]
     Active Substance: TEDIZOLID
     Dosage: 1 TAB, QD
     Route: 048
  19. URSODIOL [Concomitant]
     Active Substance: URSODIOL
     Dosage: 1 CAP, BID
     Route: 048

REACTIONS (4)
  - Drug interaction [Unknown]
  - Skin laceration [Not Recovered/Not Resolved]
  - Skin exfoliation [Unknown]
  - Skin discolouration [Not Recovered/Not Resolved]

NARRATIVE: CASE EVENT DATE: 20200101
